FAERS Safety Report 7693611-1 (Version None)
Quarter: 2011Q3

REPORT INFORMATION
  Report Type: 
  Country: None (occurrence: None)
  Receive Date: 20110819
  Receipt Date: 20110804
  Transmission Date: 20111222
  Serious: Yes (Hospitalization)
  Sender: FDA-Public Use
  Company Number: KR-SANOFI-AVENTIS-2011SA052345

PATIENT
  Age: 71 Year
  Sex: Female
  Weight: 52.3 kg

DRUGS (7)
  1. EFFEXOR [Suspect]
     Indication: DEPRESSION
     Route: 048
     Dates: end: 20110711
  2. SOLIAN [Suspect]
     Indication: DEPRESSION
     Route: 048
     Dates: start: 20110621, end: 20110707
  3. OXYCODONE HCL [Concomitant]
     Indication: PAIN
     Route: 048
     Dates: start: 20110706
  4. LORAZEPAM [Concomitant]
     Indication: DEPRESSION
     Route: 048
     Dates: start: 20110705
  5. ZOLPIDEM [Suspect]
     Indication: INSOMNIA
     Route: 048
     Dates: end: 20110707
  6. SEROQUEL [Suspect]
     Indication: DEPRESSION
     Route: 048
     Dates: end: 20110707
  7. MIRTAZAPINE [Suspect]
     Indication: DEPRESSION
     Route: 048
     Dates: end: 20110707

REACTIONS (1)
  - ELECTROCARDIOGRAM QT PROLONGED [None]
